FAERS Safety Report 9816213 (Version 1)
Quarter: 2014Q1

REPORT INFORMATION
  Report Type: Report from Study
  Country: US (occurrence: US)
  Receive Date: 20140114
  Receipt Date: 20140114
  Transmission Date: 20141002
  Serious: Yes (Hospitalization)
  Sender: FDA-Public Use
  Company Number: US-ACTELION-A-NJ2014-93373

PATIENT
  Age: 34 Year
  Sex: Female

DRUGS (2)
  1. VELETRI [Suspect]
     Indication: PULMONARY ARTERIAL HYPERTENSION
     Dosage: 27.5 NG/KG, PER MIN
     Route: 041
     Dates: start: 20110119
  2. COUMADIN [Concomitant]

REACTIONS (1)
  - Haematoma [Unknown]
